FAERS Safety Report 4742950-2 (Version None)
Quarter: 2005Q3

REPORT INFORMATION
  Report Type: 
  Country: None (occurrence: None)
  Receive Date: 20050811
  Receipt Date: 20040913
  Transmission Date: 20060218
  Serious: Yes (Hospitalization)
  Sender: FDA-Public Use
  Company Number: PHHO2004JP12896

PATIENT
  Age: 87 Year
  Sex: Female
  Weight: 49 kg

DRUGS (2)
  1. DIOVAN [Suspect]
     Indication: HYPERTENSION
     Dosage: 80 MG / DAY
     Route: 048
     Dates: start: 20030603
  2. PANALDINE [Concomitant]
     Dosage: 100 MG / DAY
     Route: 048
     Dates: start: 20010309

REACTIONS (7)
  - CEREBRAL INFARCTION [None]
  - CHOKING [None]
  - DYSPHONIA [None]
  - HYPOTENSION [None]
  - MONOPLEGIA [None]
  - SPEECH DISORDER [None]
  - THROMBOTIC STROKE [None]
